FAERS Safety Report 10234960 (Version 2)
Quarter: 2014Q2

REPORT INFORMATION
  Report Type: Other
  Country: IE (occurrence: IE)
  Receive Date: 20140613
  Receipt Date: 20140613
  Transmission Date: 20141212
  Serious: Yes (Other)
  Sender: FDA-Public Use
  Company Number: IE-TARO PHARMACEUTICALS U.S.A., INC-IE-12TAROWAR213P

PATIENT
  Sex: 0

DRUGS (9)
  1. WARFARIN [Suspect]
     Indication: ATRIAL FIBRILLATION
     Route: 065
     Dates: start: 201112, end: 20120805
  2. DILZEM SR [Concomitant]
     Indication: ATRIAL FIBRILLATION
     Dosage: 90 MG, OD
     Route: 048
  3. SERETIDE [Concomitant]
     Indication: CHRONIC OBSTRUCTIVE PULMONARY DISEASE
     Dosage: 500 MCG, 2 PUFFS
  4. AVAMYS [Concomitant]
     Indication: RHINITIS ALLERGIC
     Dosage: 4 PUFFS, 2 DF, BID
  5. ZOLMIG [Concomitant]
     Indication: MIGRAINE
     Dosage: 2.5 G, AS REQUIRED
     Route: 048
  6. LIPITOR [Concomitant]
     Indication: HYPERLIPIDAEMIA
     Dosage: 20 MG, UNK
     Route: 048
  7. TELFAST [Concomitant]
     Indication: SINUSITIS
     Dosage: 180 G, UNK
     Route: 048
  8. NEXIUM [Concomitant]
     Indication: PEPTIC ULCER
     Dosage: 40 MG, UNK
     Route: 048
  9. CACLICHEW-D3 [Concomitant]
     Indication: OSTEOPENIA
     Dosage: 1 DF, BID
     Route: 048

REACTIONS (3)
  - Fatigue [Recovered/Resolved]
  - Nausea [Recovered/Resolved]
  - Abdominal pain [Recovered/Resolved]
